FAERS Safety Report 4494611-5 (Version None)
Quarter: 2004Q4

REPORT INFORMATION
  Report Type: 
  Country: None (occurrence: None)
  Receive Date: 20041105
  Receipt Date: 20041027
  Transmission Date: 20050328
  Serious: Yes (Hospitalization)
  Sender: FDA-Public Use
  Company Number: FR-MERCK-0410FRA00101

PATIENT
  Age: 29 Month
  Sex: Female
  Weight: 12 kg

DRUGS (3)
  1. COSMEGEN [Suspect]
     Indication: RHABDOMYOSARCOMA
     Route: 041
     Dates: start: 20040830
  2. VINCRISTINE SULFATE [Suspect]
     Indication: RHABDOMYOSARCOMA
     Route: 041
     Dates: start: 20040830
  3. IFOSFAMIDE [Suspect]
     Indication: RHABDOMYOSARCOMA
     Route: 041
     Dates: start: 20040830, end: 20040831

REACTIONS (6)
  - ACCIDENTAL OVERDOSE [None]
  - AGRANULOCYTOSIS [None]
  - APLASIA [None]
  - INTESTINAL OBSTRUCTION [None]
  - NEURITIS [None]
  - THROMBOCYTOPENIA [None]
